FAERS Safety Report 10545425 (Version 2)
Quarter: 2014Q4

REPORT INFORMATION
  Report Type: Spontaneous
  Country: US (occurrence: US)
  Receive Date: 20141027
  Receipt Date: 20141027
  Transmission Date: 20150529
  Serious: Yes (Death, Other)
  Sender: FDA-Public Use
  Company Number: US-CELGENE-163-20785-14082849

PATIENT
  Age: 85 Year
  Sex: Male

DRUGS (1)
  1. THALOMID [Suspect]
     Active Substance: THALIDOMIDE
     Indication: TYPE 2 LEPRA REACTION
     Dosage: 200 MILLIGRAM
     Route: 048
     Dates: start: 20140524, end: 20140812

REACTIONS (3)
  - Terminal state [Not Recovered/Not Resolved]
  - Cerebral thrombosis [Fatal]
  - Type 2 lepra reaction [Not Recovered/Not Resolved]

NARRATIVE: CASE EVENT DATE: 20140812
